FAERS Safety Report 17196426 (Version 1)
Quarter: 2019Q4

REPORT INFORMATION
  Report Type: Spontaneous
  Country: FR (occurrence: FR)
  Receive Date: 20191224
  Receipt Date: 20191224
  Transmission Date: 20200122
  Serious: Yes (Hospitalization)
  Sender: FDA-Public Use
  Company Number: FR-009507513-1912FRA007352

PATIENT
  Age: 55 Year
  Sex: Male
  Weight: 90 kg

DRUGS (14)
  1. KETAMINE HYDROCHLORIDE. [Suspect]
     Active Substance: KETAMINE HYDROCHLORIDE
     Indication: INDUCTION OF ANAESTHESIA
     Dosage: 20 MILLIGRAM, ONCE,  50 MG/ML, SOLUTION INJECTABLE
     Route: 042
     Dates: start: 20191128, end: 20191128
  2. PARACETAMOL BRAUN [Suspect]
     Active Substance: ACETAMINOPHEN
     Indication: ANALGESIC THERAPY
     Dosage: 1 GRAM, ONCE,
     Route: 042
     Dates: start: 20191128, end: 20191128
  3. ROCURONIUM BROMIDE. [Suspect]
     Active Substance: ROCURONIUM BROMIDE
     Indication: INDUCTION OF ANAESTHESIA
     Dosage: 50 MILLIGRAM, ONCE
     Route: 042
     Dates: start: 20191128, end: 20191128
  4. PROPOFOL LIPURO [Suspect]
     Active Substance: PROPOFOL
     Indication: INDUCTION OF ANAESTHESIA
     Dosage: 200 MILLIGRAM, ONCE,
     Route: 042
     Dates: start: 20191128, end: 20191128
  5. DEXAMETHASONE MYLAN [Suspect]
     Active Substance: DEXAMETHASONE
     Indication: ANTIEMETIC SUPPORTIVE CARE
     Dosage: 8 MILLIGRAM, ONCE, 4 MG/ML, SOLUTION FOR INJECTION IN AMPOULE
     Route: 042
     Dates: start: 20191128, end: 20191128
  6. SUFENTANIL CITRATE. [Suspect]
     Active Substance: SUFENTANIL CITRATE
     Indication: INDUCTION OF ANAESTHESIA
     Dosage: 15 MICROGRAM, ONCE, SOLUTION INJECTABLE
     Route: 042
     Dates: start: 20191128, end: 20191128
  7. ROPIVACAINE HYDROCHLORIDE. [Suspect]
     Active Substance: ROPIVACAINE HYDROCHLORIDE
     Indication: INDUCTION OF ANAESTHESIA
     Dosage: UNK
     Route: 051
     Dates: start: 20191128, end: 20191128
  8. CEFAZOLINE MYLAN [Suspect]
     Active Substance: CEFAZOLIN SODIUM
     Indication: INFECTION PROPHYLAXIS
     Dosage: 2 GRAM, ONCE, POWDER FOR SOLUTION FOR INJECTION (IM-IV)
     Route: 042
     Dates: start: 20191128, end: 20191128
  9. NEFOPAM MYLAN [Suspect]
     Active Substance: NEFOPAM
     Indication: ANALGESIC THERAPY
     Dosage: 20 MILLIGRAM, ONCE,
     Route: 042
     Dates: start: 20191128, end: 20191128
  10. KETOPROFENE MEDISOL [Suspect]
     Active Substance: KETOPROFEN
     Indication: ANALGESIC THERAPY
     Dosage: 50 MILLIGRAM, ONCE, (TOTAL)
     Route: 042
     Dates: start: 20191128, end: 20191128
  11. BETADINE [Suspect]
     Active Substance: POVIDONE-IODINE
     Indication: INFECTION PROPHYLAXIS
     Dosage: 5 % SOLUTION FOR TOPICAL APPLICATION
     Route: 061
     Dates: start: 20191128, end: 20191128
  12. BRIDION [Suspect]
     Active Substance: SUGAMMADEX
     Indication: NEUROMUSCULAR BLOCKADE REVERSAL
     Dosage: 120 MILLIGRAM, ONCE,
     Route: 042
     Dates: start: 20191128, end: 20191128
  13. LIDOCAINE. [Suspect]
     Active Substance: LIDOCAINE
     Indication: INDUCTION OF ANAESTHESIA
     Dosage: 40 MILLIGRAM, ONCE,
     Route: 042
     Dates: start: 20191128, end: 20191128
  14. DROPERIDOL. [Suspect]
     Active Substance: DROPERIDOL
     Indication: ANTIEMETIC SUPPORTIVE CARE
     Dosage: 1.25 MILLIGRAM, ONCE, (TOTAL), 1.25 MG/ML, SOLUTION INJECTABLE (I.V.)
     Route: 042
     Dates: start: 20191128, end: 20191128

REACTIONS (2)
  - Rash maculo-papular [Recovered/Resolved]
  - Eyelid oedema [Recovered/Resolved]

NARRATIVE: CASE EVENT DATE: 20191128
